FAERS Safety Report 8177457-6 (Version None)
Quarter: 2012Q1

REPORT INFORMATION
  Report Type: 
  Country: None (occurrence: None)
  Receive Date: 20120301
  Receipt Date: 20120229
  Transmission Date: 20120608
  Serious: Yes (Other)
  Sender: FDA-Public Use
  Company Number: US-PFIZER INC-2012054916

PATIENT
  Age: 30 Year
  Sex: Male
  Weight: 84 kg

DRUGS (3)
  1. CHANTIX [Suspect]
     Indication: TOBACCO USER
     Dosage: 0.50 MG, DAILY
     Route: 048
     Dates: start: 20120201, end: 20120201
  2. CHANTIX [Suspect]
     Dosage: 1 MG, 2X/DAY
     Route: 048
     Dates: start: 20120201, end: 20120201
  3. LIPITOR [Concomitant]
     Indication: BLOOD CHOLESTEROL INCREASED
     Dosage: 20 MG, DAILY
     Route: 048

REACTIONS (5)
  - INAPPROPRIATE AFFECT [None]
  - MOOD SWINGS [None]
  - HOSTILITY [None]
  - DEPRESSION [None]
  - AGITATION [None]
